FAERS Safety Report 10068048 (Version 1)
Quarter: 2014Q2

REPORT INFORMATION
  Report Type: Spontaneous
  Country: US (occurrence: US)
  Receive Date: 20140409
  Receipt Date: 20140409
  Transmission Date: 20141212
  Serious: No
  Sender: FDA-Public Use
  Company Number: US-009507513-1404USA003120

PATIENT
  Sex: Male

DRUGS (3)
  1. ISENTRESS [Suspect]
     Indication: HIV INFECTION
     Dosage: UNK
     Route: 048
  2. TRUVADA [Concomitant]
     Dosage: UNK
  3. INTELENCE [Concomitant]
     Dosage: UNK

REACTIONS (2)
  - Multiple-drug resistance [Unknown]
  - Drug ineffective [Unknown]
